FAERS Safety Report 12448687 (Version 1)
Quarter: 2016Q2

REPORT INFORMATION
  Report Type: Spontaneous
  Country: US (occurrence: US)
  Receive Date: 20160608
  Receipt Date: 20160608
  Transmission Date: 20160815
  Serious: No
  Sender: FDA-Public Use
  Company Number: US-DSJP-DSU-2016-112483

PATIENT

DRUGS (1)
  1. BENICAR [Suspect]
     Active Substance: OLMESARTAN MEDOXOMIL
     Indication: PRODUCT USED FOR UNKNOWN INDICATION
     Dosage: UNK
     Dates: start: 20140409

REACTIONS (6)
  - Constipation [Unknown]
  - Abdominal distension [Unknown]
  - Diverticulum intestinal [Unknown]
  - Diarrhoea [Unknown]
  - Abdominal tenderness [Unknown]
  - Vomiting [Unknown]
